FAERS Safety Report 4331900-9 (Version None)
Quarter: 2004Q2

REPORT INFORMATION
  Report Type: 
  Country: None (occurrence: None)
  Receive Date: 20040405
  Receipt Date: 20021118
  Transmission Date: 20050107
  Serious: No
  Sender: FDA-Public Use
  Company Number: US-GLAXOSMITHKLINE-A0386865A

PATIENT
  Age: 65 Year
  Sex: Female

DRUGS (15)
  1. SEREVENT [Suspect]
     Indication: ASTHMA
     Dosage: 2PUFF TWICE PER DAY
     Route: 055
  2. LANOXIN [Concomitant]
     Route: 065
  3. REMERON [Concomitant]
     Route: 065
  4. ATROVENT [Concomitant]
     Route: 065
  5. PRILOSEC [Concomitant]
     Route: 065
  6. INTAL [Concomitant]
     Route: 065
  7. PREMARIN [Concomitant]
     Route: 065
  8. PROZAC [Concomitant]
     Route: 065
  9. PHENOBARB [Concomitant]
     Route: 065
  10. DARVOCET-N 100 [Concomitant]
     Route: 065
  11. LORAZEPAM [Concomitant]
     Route: 065
  12. TILADE [Concomitant]
     Route: 065
  13. XOPENEX [Concomitant]
     Route: 065
  14. QVAR 40 [Concomitant]
     Route: 065
  15. CLARITIN [Concomitant]
     Route: 065

REACTIONS (2)
  - PHARMACEUTICAL PRODUCT COMPLAINT [None]
  - THROAT IRRITATION [None]
